FAERS Safety Report 8315537-2 (Version None)
Quarter: 2012Q2

REPORT INFORMATION
  Report Type: 
  Country: None (occurrence: None)
  Receive Date: 20120426
  Receipt Date: 20091210
  Transmission Date: 20120825
  Serious: Yes (Other)
  Sender: FDA-Public Use
  Company Number: US-TEVA-2009029669

PATIENT
  Sex: Female

DRUGS (4)
  1. FENTANYL CITRATE [Suspect]
     Indication: UTERINE CANCER
     Route: 002
  2. FENTANYL-100 [Concomitant]
     Indication: ENDOMETRIOSIS
     Route: 061
  3. FENTANYL CITRATE [Suspect]
     Indication: ENDOMETRIOSIS
  4. FENTANYL CITRATE [Suspect]
     Indication: RHEUMATOID ARTHRITIS

REACTIONS (2)
  - DISTURBANCE IN ATTENTION [None]
  - CONVULSION [None]
